FAERS Safety Report 9829959 (Version 1)
Quarter: 2014Q1

REPORT INFORMATION
  Report Type: Spontaneous
  Country: IN (occurrence: IN)
  Receive Date: 20140120
  Receipt Date: 20140120
  Transmission Date: 20141002
  Serious: Yes (Other)
  Sender: FDA-Public Use
  Company Number: IN-MYLANLABS-2014S1000422

PATIENT
  Age: 16 Year
  Sex: Male

DRUGS (2)
  1. PHENYTOIN [Suspect]
     Indication: EPILEPSY
     Route: 048
  2. CLOBAZAM [Concomitant]
     Indication: EPILEPSY
     Dosage: 5MG WHEN REQUIRED
     Route: 048

REACTIONS (2)
  - Cerebellar atrophy [Recovering/Resolving]
  - Drug level increased [Unknown]
